FAERS Safety Report 5304690-0 (Version None)
Quarter: 2007Q2

REPORT INFORMATION
  Report Type: 
  Country: None (occurrence: None)
  Receive Date: 20070423
  Receipt Date: 20070418
  Transmission Date: 20071010
  Serious: Yes (Hospitalization)
  Sender: FDA-Public Use
  Company Number: 200711790EU

PATIENT
  Age: 50 Year
  Sex: Female

DRUGS (8)
  1. NICODERM [Suspect]
     Indication: SMOKING CESSATION THERAPY
     Route: 062
     Dates: start: 20070306, end: 20070308
  2. IMITREX [Suspect]
  3. ALPRAZOLAM [Concomitant]
     Dates: start: 19950101
  4. AMITRIPTYLINE HCL [Concomitant]
     Indication: PAIN
     Dates: start: 19990101
  5. SERAX [Concomitant]
     Indication: SLEEP DISORDER
     Dates: start: 20030101
  6. HYDROMORPHONE HCL [Concomitant]
     Dates: start: 20060101
  7. DILAUDID [Concomitant]
     Dosage: 8MG THREE TIMES PER DAY
     Dates: start: 20060101
  8. PANTOPRAZOLE SODIUM [Concomitant]
     Dates: start: 20070101

REACTIONS (6)
  - ADVERSE EVENT [None]
  - DEHYDRATION [None]
  - DRUG INEFFECTIVE [None]
  - HYPERSENSITIVITY [None]
  - PNEUMONIA [None]
  - WHITE BLOOD CELL COUNT INCREASED [None]
